FAERS Safety Report 9348048 (Version 6)
Quarter: 2013Q3

REPORT INFORMATION
  Report Type: Spontaneous
  Country: US (occurrence: US)
  Receive Date: 20130614
  Receipt Date: 20130715
  Transmission Date: 20140515
  Serious: Yes (Hospitalization)
  Sender: FDA-Public Use
  Company Number: US-JNJFOC-20130603555

PATIENT
  Sex: 0

DRUGS (2)
  1. XARELTO [Suspect]
     Indication: DEEP VEIN THROMBOSIS
     Route: 048
     Dates: end: 2013
  2. ANTIVIRAL MEDICATIONS [Interacting]
     Indication: HIV INFECTION
     Route: 065

REACTIONS (2)
  - Subarachnoid haemorrhage [Unknown]
  - Drug interaction [Unknown]
